FAERS Safety Report 4964931-6 (Version None)
Quarter: 2006Q2

REPORT INFORMATION
  Report Type: 
  Country: None (occurrence: None)
  Receive Date: 20060403
  Receipt Date: 20060320
  Transmission Date: 20061013
  Serious: Yes (Death)
  Sender: FDA-Public Use
  Company Number: 223480

PATIENT
  Age: 50 Year
  Sex: Male

DRUGS (3)
  1. HERCEPTIN [Suspect]
     Indication: GASTRIC CANCER
     Dosage: 8 MG/KG, SINGLE, INTRAVENOUS; 360 MG, Q3W, INTRAVENOUS
     Route: 042
     Dates: start: 20060206
  2. CAPECITABINE (CAPECITABINE) [Suspect]
     Indication: GASTRIC CANCER
     Dosage: 1800 MG, QD, ORAL
     Route: 048
     Dates: start: 20060206
  3. CISPLATIN [Suspect]
     Indication: GASTRIC CANCER
     Dosage: 141 MG, Q3W, INTRAVENOUS
     Route: 042
     Dates: start: 20060206

REACTIONS (5)
  - ASTHENIA [None]
  - BLOOD PRESSURE DECREASED [None]
  - GASTRIC HAEMORRHAGE [None]
  - GENERAL PHYSICAL HEALTH DETERIORATION [None]
  - HAEMATEMESIS [None]
